FAERS Safety Report 7940554-1 (Version None)
Quarter: 2011Q4

REPORT INFORMATION
  Report Type: 
  Country: None (occurrence: None)
  Receive Date: 20111114
  Receipt Date: 20110404
  Transmission Date: 20120403
  Serious: Yes (Death)
  Sender: FDA-Public Use
  Company Number: 2011S1000270

PATIENT
  Sex: Male

DRUGS (1)
  1. CUBICIN [Suspect]
     Indication: ENTEROCOCCAL INFECTION
     Dosage: 4 MG/KG; Q24H; IV
     Route: 042

REACTIONS (2)
  - PRE-EXISTING DISEASE [None]
  - PATHOGEN RESISTANCE [None]
